FAERS Safety Report 12606814 (Version 3)
Quarter: 2017Q3

REPORT INFORMATION
  Report Type: Spontaneous
  Country: US (occurrence: US)
  Receive Date: 20160729
  Receipt Date: 20170927
  Transmission Date: 20171127
  Serious: Yes (Other)
  Sender: FDA-Public Use
  Company Number: US-SUN PHARMACEUTICAL INDUSTRIES LTD-2016US-114148

PATIENT
  Age: 22 Year
  Sex: Female

DRUGS (7)
  1. 5-FLUOROURACIL [Suspect]
     Active Substance: FLUOROURACIL
     Indication: PANCREATIC CARCINOMA
     Dosage: 400 MG/M^2
     Route: 042
     Dates: start: 20140128
  2. NEUPOGEN [Concomitant]
     Active Substance: FILGRASTIM
     Indication: PROPHYLAXIS
  3. 5-FLUOROURACIL [Suspect]
     Active Substance: FLUOROURACIL
     Dosage: 2400 MG/M^2 OVER 46 H
     Route: 042
  4. CALCIUM FOLINAT [Suspect]
     Active Substance: LEUCOVORIN CALCIUM
     Indication: PANCREATIC CARCINOMA
     Dosage: 350 MG
     Route: 042
     Dates: start: 20140128
  5. OXALIPLATIN. [Suspect]
     Active Substance: OXALIPLATIN
     Indication: PANCREATIC CARCINOMA
     Dosage: 85 MG/M^2
     Route: 042
     Dates: start: 20140128
  6. CAPECITABINE. [Suspect]
     Active Substance: CAPECITABINE
     Indication: PANCREATIC CARCINOMA
     Dosage: 12 CYCLES
     Route: 042
  7. IRINOTECAN [Suspect]
     Active Substance: IRINOTECAN
     Indication: PANCREATIC CARCINOMA
     Dosage: 180 MG/M^2
     Route: 042
     Dates: start: 20140128

REACTIONS (7)
  - Dry mouth [Unknown]
  - Fatigue [Unknown]
  - Alopecia [Unknown]
  - Seizure [Unknown]
  - Transaminases increased [Unknown]
  - Peripheral sensory neuropathy [Unknown]
  - Thrombocytopenia [Unknown]
